FAERS Safety Report 11827423 (Version 1)
Quarter: 2015Q4

REPORT INFORMATION
  Report Type: Spontaneous
  Country: IT (occurrence: IT)
  Receive Date: 20151211
  Receipt Date: 20151211
  Transmission Date: 20160305
  Serious: Yes (Other)
  Sender: FDA-Public Use
  Company Number: PHHY2015IT160589

PATIENT
  Age: 13 Year
  Sex: Female
  Weight: 63 kg

DRUGS (3)
  1. AMOXICILLIN. [Suspect]
     Active Substance: AMOXICILLIN
     Indication: HELICOBACTER INFECTION
     Dosage: 2 G, QD
     Route: 048
     Dates: start: 20151113, end: 20151117
  2. PANTORC [Suspect]
     Active Substance: PANTOPRAZOLE SODIUM
     Indication: HELICOBACTER INFECTION
     Dosage: 80 MG, QD
     Route: 065
     Dates: start: 20151113, end: 20151117
  3. METRONIDAZOLO [Suspect]
     Active Substance: METRONIDAZOLE
     Indication: HELICOBACTER INFECTION
     Dosage: 1000 MG, QD
     Route: 065
     Dates: start: 20151113, end: 20151117

REACTIONS (4)
  - Dizziness [Recovering/Resolving]
  - Syncope [Recovering/Resolving]
  - Vision blurred [Recovering/Resolving]
  - Presyncope [Recovering/Resolving]

NARRATIVE: CASE EVENT DATE: 20151114
